FAERS Safety Report 26083870 (Version 2)
Quarter: 2025Q4

REPORT INFORMATION
  Report Type: Spontaneous
  Country: US (occurrence: US)
  Receive Date: 20251124
  Receipt Date: 20251129
  Transmission Date: 20260118
  Serious: Yes (Other)
  Sender: ABBVIE
  Company Number: US-ABBVIE-6557054

PATIENT
  Sex: Female
  Weight: 62 kg

DRUGS (4)
  1. REFRESH TEARS PF [Suspect]
     Active Substance: CARBOXYMETHYLCELLULOSE SODIUM\GLYCERIN
     Indication: Product used for unknown indication
     Route: 047
  2. REFRESH CLASSIC [Suspect]
     Active Substance: POLYVINYL ALCOHOL\POVIDONE
     Indication: Dry eye
     Dosage: UNKNOWN
     Route: 047
     Dates: start: 2023, end: 202511
  3. REFRESH CLASSIC [Suspect]
     Active Substance: POLYVINYL ALCOHOL\POVIDONE
     Indication: Product used for unknown indication
     Route: 047
     Dates: start: 202511
  4. REFRESH TEARS [Suspect]
     Active Substance: CARBOXYMETHYLCELLULOSE SODIUM
     Indication: Dry eye
     Route: 047

REACTIONS (9)
  - Blindness unilateral [Not Recovered/Not Resolved]
  - Eye infection [Unknown]
  - Eye irritation [Recovered/Resolved]
  - Product odour abnormal [Unknown]
  - Eyelid disorder [Recovered/Resolved]
  - Eye pain [Recovered/Resolved]
  - Product packaging issue [Unknown]
  - Lacrimation increased [Recovered/Resolved]
  - Product container issue [Unknown]

NARRATIVE: CASE EVENT DATE: 20251101
